FAERS Safety Report 14689298 (Version 1)
Quarter: 2018Q1

REPORT INFORMATION
  Report Type: Spontaneous
  Country: US (occurrence: US)
  Receive Date: 20180327
  Receipt Date: 20180327
  Transmission Date: 20180509
  Serious: No
  Sender: FDA-Public Use
  Company Number: None

PATIENT
  Age: 9 Year
  Sex: Male
  Weight: 46.8 kg

DRUGS (5)
  1. MONTELUKAST SODIUM CHEWABLE [Suspect]
     Active Substance: MONTELUKAST SODIUM
     Indication: ASTHMA
     Dosage: ?          QUANTITY:1 TABLET(S);?
     Route: 048
     Dates: start: 20180226, end: 20180323
  2. PROAIR ALBUTEROL INHALER [Concomitant]
  3. SYMBICORT [Concomitant]
     Active Substance: BUDESONIDE\FORMOTEROL FUMARATE DIHYDRATE
  4. JUNIOR REDITABS PEPCID [Concomitant]
  5. CLARITIN [Concomitant]
     Active Substance: LORATADINE

REACTIONS (5)
  - Mood altered [None]
  - Emotional disorder [None]
  - Anxiety [None]
  - Eye pain [None]
  - Depressed mood [None]

NARRATIVE: CASE EVENT DATE: 20180323
